FAERS Safety Report 9616156 (Version 2)
Quarter: 2013Q4

REPORT INFORMATION
  Report Type: Spontaneous
  Country: US (occurrence: US)
  Receive Date: 20131011
  Receipt Date: 20131011
  Transmission Date: 20140711
  Serious: No
  Sender: FDA-Public Use
  Company Number: US-PURDUE-USA-2013-0099317

PATIENT
  Age: 50 Year
  Sex: Female

DRUGS (1)
  1. BUTRANS [Suspect]
     Indication: PAIN
     Dosage: UNK
     Route: 062
     Dates: start: 201212, end: 201212

REACTIONS (9)
  - Application site scab [Unknown]
  - Inappropriate schedule of drug administration [Unknown]
  - Application site discolouration [Unknown]
  - Application site burn [Recovered/Resolved]
  - Hyperhidrosis [Unknown]
  - Product adhesion issue [Unknown]
  - Application site vesicles [Unknown]
  - Unevaluable event [Unknown]
  - Drug effect decreased [Unknown]
